FAERS Safety Report 7944440-2 (Version None)
Quarter: 2011Q4

REPORT INFORMATION
  Report Type: 
  Country: None (occurrence: None)
  Receive Date: 20111129
  Receipt Date: 20111117
  Transmission Date: 20120403
  Serious: Yes (Hospitalization)
  Sender: FDA-Public Use
  Company Number: US-SP-2011-10520

PATIENT
  Sex: Female

DRUGS (2)
  1. ADACEL [Suspect]
     Indication: IMMUNISATION
     Route: 023
     Dates: start: 20111031, end: 20111031
  2. TUBERSOL [Suspect]
     Indication: TUBERCULIN TEST
     Route: 030
     Dates: start: 20111031, end: 20111031

REACTIONS (6)
  - RASH MACULAR [None]
  - INCORRECT ROUTE OF DRUG ADMINISTRATION [None]
  - BLISTER [None]
  - OPEN WOUND [None]
  - ERYTHEMA [None]
  - INFLAMMATION [None]
